FAERS Safety Report 7986177-X (Version None)
Quarter: 2011Q4

REPORT INFORMATION
  Report Type: 
  Country: None (occurrence: None)
  Receive Date: 20111216
  Receipt Date: 20111209
  Transmission Date: 20120403
  Serious: Yes (Hospitalization)
  Sender: FDA-Public Use
  Company Number: US-GLAXOSMITHKLINE-A0890000A

PATIENT
  Age: 63 Year
  Sex: Male

DRUGS (2)
  1. AVANDARYL [Suspect]
     Indication: TYPE 2 DIABETES MELLITUS
     Route: 048
     Dates: start: 20060701, end: 20070830
  2. AVANDIA [Suspect]
     Indication: TYPE 2 DIABETES MELLITUS
     Dosage: 4MG PER DAY
     Route: 048
     Dates: start: 20021025, end: 20030223

REACTIONS (2)
  - CORONARY ARTERY DISEASE [None]
  - ANGINA UNSTABLE [None]
